FAERS Safety Report 9601082 (Version 2)
Quarter: 2013Q4

REPORT INFORMATION
  Report Type: Spontaneous
  Country: US (occurrence: US)
  Receive Date: 20131004
  Receipt Date: 20131004
  Transmission Date: 20140711
  Serious: No
  Sender: FDA-Public Use
  Company Number: US-AMGEN-USASP2013019569

PATIENT
  Age: 73 Year
  Sex: Female

DRUGS (1)
  1. ENBREL [Suspect]
     Indication: RHEUMATOID ARTHRITIS
     Dosage: 50 MG, QWK
     Route: 065
     Dates: start: 20130314, end: 201303

REACTIONS (8)
  - Capillary fragility [Recovered/Resolved]
  - Stomatitis [Not Recovered/Not Resolved]
  - Arthropathy [Not Recovered/Not Resolved]
  - Blood glucose decreased [Recovered/Resolved]
  - Hunger [Recovered/Resolved]
  - Tremor [Recovered/Resolved]
  - Choking [Recovered/Resolved]
  - Fungal infection [Not Recovered/Not Resolved]
